FAERS Safety Report 11777127 (Version 1)
Quarter: 2015Q4

REPORT INFORMATION
  Report Type: Spontaneous
  Country: US (occurrence: US)
  Receive Date: 20151125
  Receipt Date: 20151125
  Transmission Date: 20160304
  Serious: No
  Sender: FDA-Public Use
  Company Number: US-PFIZER INC-2015389447

PATIENT
  Age: 49 Year
  Sex: Female
  Weight: 58 kg

DRUGS (20)
  1. LYRICA [Suspect]
     Active Substance: PREGABALIN
     Indication: ARTHRITIS
  2. LYRICA [Suspect]
     Active Substance: PREGABALIN
     Indication: FIBROMYALGIA
     Dosage: 225 MG, 2X/DAY
     Route: 048
  3. LYRICA [Suspect]
     Active Substance: PREGABALIN
     Indication: NEURALGIA
  4. METOCLOPRAMIDE. [Concomitant]
     Active Substance: METOCLOPRAMIDE
     Dosage: 10 MG, 1X/DAY
  5. VITAMIN D3 [Concomitant]
     Active Substance: CHOLECALCIFEROL
     Dosage: 2000 IU, 1X/DAY
  6. MORPHINE SULPHATE EXTENDED RELEASE [Concomitant]
     Dosage: 30 MG, 2X/DAY
  7. LINZESS [Concomitant]
     Active Substance: LINACLOTIDE
     Dosage: 290 UG, 1X/DAY
  8. ESOMEPRAZOLE [Concomitant]
     Active Substance: ESOMEPRAZOLE
     Dosage: 40 MG, 1X/DAY
  9. CALCIUM [Concomitant]
     Active Substance: CALCIUM
     Dosage: 500 MG, 2X/DAY
  10. VITAMIN B6 [Concomitant]
     Active Substance: PYRIDOXINE HYDROCHLORIDE
     Dosage: 100 MG, 1X/DAY
  11. MORPHINE SULPHATE IMMEDIATE RELEASE [Concomitant]
     Dosage: 50 MG EVERY 4 HOURS AS NEEDED BETWEEN TWO AND FOUR A DAY, AVERAGE WAS THREE
  12. GLUCOSAMINE + CHONDROITIN [Concomitant]
     Active Substance: CHONDROITIN SULFATE (BOVINE)\GLUCOSAMINE HYDROCHLORIDE
     Dosage: UNK, 1X/DAY
  13. DULOXETINE. [Concomitant]
     Active Substance: DULOXETINE
     Dosage: 60 MG, 1X/DAY
  14. BACLOFEN. [Concomitant]
     Active Substance: BACLOFEN
     Dosage: 10 MG, TWO OF THOSE ONCE A DAY
  15. LYRICA [Suspect]
     Active Substance: PREGABALIN
     Indication: INTERVERTEBRAL DISC DEGENERATION
  16. MOVANTIK [Concomitant]
     Active Substance: NALOXEGOL OXALATE
     Dosage: 25 MG, 1X/DAY
  17. LYRICA [Suspect]
     Active Substance: PREGABALIN
     Indication: MUSCULAR WEAKNESS
  18. PREDNISONE. [Concomitant]
     Active Substance: PREDNISONE
     Dosage: 375 MG, WEEKLY
  19. FLUTICASONE [Concomitant]
     Active Substance: FLUTICASONE\FLUTICASONE PROPIONATE
     Dosage: 50 UG, 1X/DAY
  20. L-LYSINE [Concomitant]
     Active Substance: LYSINE
     Dosage: 500 MG, 1X/DAY

REACTIONS (1)
  - Memory impairment [Unknown]
